FAERS Safety Report 6589699-1 (Version None)
Quarter: 2010Q1

REPORT INFORMATION
  Report Type: 
  Country: None (occurrence: None)
  Receive Date: 20100219
  Receipt Date: 20100210
  Transmission Date: 20100710
  Serious: Yes (Hospitalization)
  Sender: FDA-Public Use
  Company Number: US-BIOGENIDEC-2010BI003885

PATIENT
  Age: 59 Year
  Sex: Female
  Weight: 54 kg

DRUGS (1)
  1. AVONEX [Suspect]
     Indication: MULTIPLE SCLEROSIS
     Route: 030
     Dates: start: 19970301

REACTIONS (15)
  - APHASIA [None]
  - ATROPHY [None]
  - BACK PAIN [None]
  - CHEST PAIN [None]
  - COMA [None]
  - CONVULSION [None]
  - DYSARTHRIA [None]
  - FALL [None]
  - HEAD INJURY [None]
  - HEART RATE DECREASED [None]
  - HYPOTONIA [None]
  - INFLUENZA LIKE ILLNESS [None]
  - MOBILITY DECREASED [None]
  - MULTIPLE SCLEROSIS RELAPSE [None]
  - URINARY RETENTION [None]
